FAERS Safety Report 12926891 (Version 2)
Quarter: 2017Q1

REPORT INFORMATION
  Report Type: Spontaneous
  Country: US (occurrence: US)
  Receive Date: 20161109
  Receipt Date: 20170112
  Transmission Date: 20170428
  Serious: Yes (Other)
  Sender: FDA-Public Use
  Company Number: US-NOVOPROD-517624

PATIENT
  Age: 62 Year
  Sex: Female
  Weight: 84.35 kg

DRUGS (4)
  1. TOUJEO [Suspect]
     Active Substance: INSULIN GLARGINE
     Indication: TYPE 2 DIABETES MELLITUS
     Dosage: 25 MG, QD
     Route: 058
     Dates: start: 20161030
  2. NOVOLOG [Suspect]
     Active Substance: INSULIN ASPART
     Dosage: UNK, ONLY WHEN SUGAR IS OVER 200MG/DL
     Route: 058
  3. NOVOLOG [Suspect]
     Active Substance: INSULIN ASPART
     Dosage: 10 U, SINGLE
     Route: 058
     Dates: start: 20161031, end: 20161031
  4. NOVOLOG [Suspect]
     Active Substance: INSULIN ASPART
     Indication: TYPE 2 DIABETES MELLITUS
     Dosage: UNK, ONLY WHEN SUGAR IS OVER 200MG/DL
     Route: 058
     Dates: end: 20161030

REACTIONS (3)
  - Blood glucose increased [Recovered/Resolved]
  - Blood glucose decreased [Recovered/Resolved]
  - Road traffic accident [Unknown]

NARRATIVE: CASE EVENT DATE: 20161031
